FAERS Safety Report 16477015 (Version 4)
Quarter: 2019Q3

REPORT INFORMATION
  Report Type: Spontaneous
  Country: CA (occurrence: CA)
  Receive Date: 20190626
  Receipt Date: 20190919
  Transmission Date: 20191004
  Serious: Yes (Hospitalization, Disabling)
  Sender: FDA-Public Use
  Company Number: CA-TEVA-2019-CA-1040426

PATIENT
  Age: 33 Year
  Sex: Male
  Weight: 115 kg

DRUGS (3)
  1. SERTRALINE [Concomitant]
     Active Substance: SERTRALINE HYDROCHLORIDE
     Indication: DEPRESSION
     Dosage: 100 MILLIGRAM DAILY; ON AND OFF TO ONGOING
     Route: 048
  2. ACT-CIPROFLOXACIN [Suspect]
     Active Substance: CIPROFLOXACIN
     Indication: EPIDIDYMITIS
     Dosage: 1000 MILLIGRAM DAILY;
     Route: 048
     Dates: start: 20180906, end: 20180920
  3. ALLOPURINOL. [Concomitant]
     Active Substance: ALLOPURINOL
     Indication: GOUT
     Dosage: 300 MILLIGRAM DAILY; ONGOING
     Route: 048
     Dates: start: 2014

REACTIONS (14)
  - Anxiety [Recovering/Resolving]
  - Arthralgia [Not Recovered/Not Resolved]
  - Musculoskeletal pain [Not Recovered/Not Resolved]
  - Pain [Not Recovered/Not Resolved]
  - Swelling [Recovering/Resolving]
  - Loss of personal independence in daily activities [Unknown]
  - Tendonitis [Recovering/Resolving]
  - Asthenia [Unknown]
  - Gait inability [Recovering/Resolving]
  - Gait disturbance [Unknown]
  - Neuralgia [Recovering/Resolving]
  - Rotator cuff syndrome [Not Recovered/Not Resolved]
  - Enthesopathy [Unknown]
  - Pain in extremity [Unknown]

NARRATIVE: CASE EVENT DATE: 20180913
